FAERS Safety Report 9819538 (Version 2)
Quarter: 2014Q1

REPORT INFORMATION
  Report Type: Report from Study
  Country: JP (occurrence: JP)
  Receive Date: 20140115
  Receipt Date: 20140314
  Transmission Date: 20141002
  Serious: Yes (Other)
  Sender: FDA-Public Use
  Company Number: JP-ABBVIE-14P-087-1190061-00

PATIENT
  Age: 53 Year
  Sex: Male

DRUGS (9)
  1. LIPACREON CAPSULES 150MG [Suspect]
     Indication: PANCREATIC INSUFFICIENCY
     Route: 048
     Dates: start: 20130615
  2. TS-1 [Suspect]
     Indication: PANCREATIC CARCINOMA
     Dosage: 120 MILLIGRAM; DAY1-DAY8
     Route: 048
     Dates: start: 20130610, end: 20130722
  3. TS-1 [Suspect]
     Dosage: 100 MILLIGRAM; DAY1-DAY8
     Dates: start: 20130805
  4. CHEMOTHERAPEUTICS [Suspect]
     Indication: PRODUCT USED FOR UNKNOWN INDICATION
  5. GEMCITABINE HYDROCHLORIDE [Concomitant]
     Indication: PANCREATIC CARCINOMA
     Dosage: ONCE IN 2 WEEKS, DAY1
     Dates: start: 20130610, end: 20130722
  6. GEMCITABINE HYDROCHLORIDE [Concomitant]
     Dosage: ONCE IN 2 WEEKS, DAY1
     Dates: start: 20130805
  7. CALCIUM FOLINATE [Concomitant]
     Indication: PANCREATIC CARCINOMA
     Dosage: 50 MILLIGRAM; DAY 1-DAY8
     Route: 048
     Dates: start: 20130610, end: 20130722
  8. CALCIUM FOLINATE [Concomitant]
     Dosage: 50 MILLIGRAM; DAY 1-DAY8
     Dates: start: 20130805
  9. AZULENE [Concomitant]
     Indication: STOMATITIS
     Dosage: 5-7 DROP/DAY
     Dates: start: 20130618, end: 20130618

REACTIONS (2)
  - Stomatitis [Recovering/Resolving]
  - Decreased appetite [Recovering/Resolving]
